FAERS Safety Report 7403273-6 (Version None)
Quarter: 2011Q2

REPORT INFORMATION
  Report Type: 
  Country: None (occurrence: None)
  Receive Date: 20110408
  Receipt Date: 20110407
  Transmission Date: 20111010
  Serious: Yes (Disabling)
  Sender: FDA-Public Use
  Company Number: FR-ABBOTT-11P-056-0714403-00

PATIENT
  Sex: Male

DRUGS (1)
  1. LIPANTHYL [Suspect]
     Indication: DYSLIPIDAEMIA
     Dosage: DAILY DOSE: 145MG
     Route: 048
     Dates: start: 20100623, end: 20100908

REACTIONS (1)
  - LIGAMENT RUPTURE [None]
